FAERS Safety Report 6107472-5 (Version None)
Quarter: 2009Q1

REPORT INFORMATION
  Report Type: 
  Country: None (occurrence: None)
  Receive Date: 20090309
  Receipt Date: 20090303
  Transmission Date: 20090719
  Serious: Yes (Other)
  Sender: FDA-Public Use
  Company Number: US-ASTRAZENECA-2009UW05749

PATIENT
  Age: 89 Year
  Sex: Female
  Weight: 86.2 kg

DRUGS (4)
  1. ARIMIDEX [Suspect]
     Route: 048
     Dates: start: 19990101
  2. ALBUTEROL [Concomitant]
  3. DIGOXIN [Concomitant]
  4. ASPIRIN [Concomitant]

REACTIONS (18)
  - ANAEMIA [None]
  - CARDIAC DISORDER [None]
  - CARDIAC FAILURE CONGESTIVE [None]
  - CATARACT [None]
  - CEREBROVASCULAR ACCIDENT [None]
  - CLOSTRIDIAL INFECTION [None]
  - DIABETES MELLITUS [None]
  - DIVERTICULITIS [None]
  - DYSPHAGIA [None]
  - FALL [None]
  - FATIGUE [None]
  - GASTROOESOPHAGEAL REFLUX DISEASE [None]
  - HYPOAESTHESIA [None]
  - PNEUMONIA [None]
  - RECURRENT CANCER [None]
  - SEPSIS [None]
  - SPINAL COLUMN STENOSIS [None]
  - TREMOR [None]
